FAERS Safety Report 21912083 (Version 1)
Quarter: 2023Q1

REPORT INFORMATION
  Report Type: Spontaneous
  Country: US (occurrence: US)
  Receive Date: 20230125
  Receipt Date: 20230125
  Transmission Date: 20230418
  Serious: No
  Sender: FDA-Public Use
  Company Number: US-ALLERGAN-2230919US

PATIENT
  Age: 90 Year
  Sex: Female
  Weight: 51.255 kg

DRUGS (2)
  1. BOTOX [Suspect]
     Active Substance: ONABOTULINUMTOXINA
     Indication: Migraine
     Dosage: UNK, SINGLE
     Dates: start: 20220912, end: 20220912
  2. THYROID [Concomitant]
     Active Substance: LEVOTHYROXINE\LIOTHYRONINE

REACTIONS (5)
  - Eye swelling [Not Recovered/Not Resolved]
  - Hypertension [Recovered/Resolved]
  - Asthenia [Recovering/Resolving]
  - Gait disturbance [Recovering/Resolving]
  - Visual impairment [Not Recovered/Not Resolved]

NARRATIVE: CASE EVENT DATE: 20220912
